FAERS Safety Report 6095517-0 (Version None)
Quarter: 2009Q1

REPORT INFORMATION
  Report Type: 
  Country: None (occurrence: None)
  Receive Date: 20090227
  Receipt Date: 20080417
  Transmission Date: 20090719
  Serious: No
  Sender: FDA-Public Use
  Company Number: A0723441A

PATIENT
  Age: 54 Year
  Sex: Female

DRUGS (2)
  1. LAMICTAL [Suspect]
     Indication: DRUG USE FOR UNKNOWN INDICATION
     Route: 048
     Dates: start: 20080415
  2. HRT [Concomitant]

REACTIONS (4)
  - DYSGEUSIA [None]
  - HANGOVER [None]
  - INSOMNIA [None]
  - SOMNOLENCE [None]
